FAERS Safety Report 16690609 (Version 1)
Quarter: 2019Q3

REPORT INFORMATION
  Report Type: Spontaneous
  Country: US (occurrence: US)
  Receive Date: 20190624
  Receipt Date: 20190624
  Transmission Date: 20191004
  Serious: No
  Sender: FDA-Public Use
  Company Number: None

PATIENT
  Age: 62 Year
  Sex: Male
  Weight: 99.79 kg

DRUGS (2)
  1. TADALAFIL 5MG [Suspect]
     Active Substance: TADALAFIL
     Indication: BENIGN PROSTATIC HYPERPLASIA
     Dosage: ?          QUANTITY:30 TOT - TOTAL;?
     Route: 048
     Dates: start: 201810
  2. TADALAFIL 5MG [Suspect]
     Active Substance: TADALAFIL
     Indication: ERECTILE DYSFUNCTION
     Dosage: ?          QUANTITY:30 TOT - TOTAL;?
     Route: 048
     Dates: start: 201810

REACTIONS (7)
  - Therapeutic product effect incomplete [None]
  - Pollakiuria [None]
  - Urinary retention [None]
  - Product substitution issue [None]
  - Condition aggravated [None]
  - Product quality issue [None]
  - Benign prostatic hyperplasia [None]

NARRATIVE: CASE EVENT DATE: 201810
